FAERS Safety Report 9352663 (Version 1)
Quarter: 2013Q2

REPORT INFORMATION
  Report Type: Report from Study
  Country: CA (occurrence: CA)
  Receive Date: 20130618
  Receipt Date: 20130618
  Transmission Date: 20140414
  Serious: Yes (Hospitalization)
  Sender: FDA-Public Use
  Company Number: CA-ROCHE-1236811

PATIENT
  Age: 54 Year
  Sex: Male
  Weight: 97.5 kg

DRUGS (7)
  1. RITUXAN [Suspect]
     Indication: RHEUMATOID ARTHRITIS
     Route: 042
     Dates: start: 20100914
  2. DIPHENHYDRAMINE HCL [Concomitant]
     Route: 048
     Dates: start: 20100914
  3. ACETAMINOPHEN [Concomitant]
     Route: 048
     Dates: start: 20100914
  4. METHYLPREDNISOLONE [Concomitant]
     Route: 042
     Dates: start: 20100914
  5. ARAVA [Concomitant]
  6. TELMISARTAN [Concomitant]
  7. TYLENOL [Concomitant]
     Route: 065

REACTIONS (6)
  - Groin pain [Recovering/Resolving]
  - Bacterial infection [Unknown]
  - Back pain [Recovered/Resolved]
  - Weight decreased [Not Recovered/Not Resolved]
  - Immunodeficiency [Not Recovered/Not Resolved]
  - Arthralgia [Recovering/Resolving]
